FAERS Safety Report 26084512 (Version 1)
Quarter: 2025Q4

REPORT INFORMATION
  Report Type: Spontaneous
  Country: US (occurrence: US)
  Receive Date: 20251124
  Receipt Date: 20251124
  Transmission Date: 20260119
  Serious: Yes (Other)
  Sender: NOVO NORDISK
  Company Number: US-NOVOPROD-1567949

PATIENT
  Age: 67 Year
  Sex: Female

DRUGS (3)
  1. LEVEMIR [Suspect]
     Active Substance: INSULIN DETEMIR
     Indication: Type 2 diabetes mellitus
     Dosage: 20 UNITS FOR MORNING, LUNCH AND DINNER TIME.
     Route: 058
     Dates: start: 2010, end: 2024
  2. LEVEMIR [Suspect]
     Active Substance: INSULIN DETEMIR
     Indication: Blood pressure measurement
  3. COVID-19 VACCINE NOS [Suspect]
     Active Substance: COVID-19 VACCINE
     Indication: COVID-19
     Dosage: UNK

REACTIONS (3)
  - Cataract operation [Recovered/Resolved]
  - Cerebrovascular accident [Not Recovered/Not Resolved]
  - Muscular weakness [Not Recovered/Not Resolved]

NARRATIVE: CASE EVENT DATE: 20210101
